FAERS Safety Report 8264708-2 (Version None)
Quarter: 2012Q2

REPORT INFORMATION
  Report Type: 
  Country: None (occurrence: None)
  Receive Date: 20120406
  Receipt Date: 20120330
  Transmission Date: 20120825
  Serious: Yes (Hospitalization)
  Sender: FDA-Public Use
  Company Number: JP-JNJFOC-20120308674

PATIENT
  Age: 39 Year
  Sex: Male

DRUGS (5)
  1. FENTANYL CITRATE [Suspect]
     Indication: PAIN MANAGEMENT
     Dosage: 12.6 UG/HR
     Route: 062
  2. PAROXETINE [Suspect]
     Indication: PAIN MANAGEMENT
     Route: 065
  3. ACETAMINOPHEN [Suspect]
     Route: 048
  4. GABAPENTIN [Suspect]
     Indication: PAIN MANAGEMENT
     Route: 065
  5. ACETAMINOPHEN [Suspect]
     Indication: PAIN MANAGEMENT
     Dosage: 4 G
     Route: 048

REACTIONS (1)
  - DRUG INEFFECTIVE [None]
